FAERS Safety Report 5525656-1 (Version None)
Quarter: 2007Q4

REPORT INFORMATION
  Report Type: 
  Country: None (occurrence: None)
  Receive Date: 20071120
  Receipt Date: 20071120
  Transmission Date: 20080405
  Serious: Yes (Other)
  Sender: FDA-Public Use
  Company Number: None

PATIENT
  Age: 65 Year
  Sex: Female
  Weight: 72.5755 kg

DRUGS (3)
  1. LEVAQUIN [Suspect]
     Indication: PNEUMONIA
     Dosage: 1 TABLET  DAILY
     Dates: start: 20071108, end: 20071115
  2. AVELOX [Suspect]
     Indication: BRONCHITIS
     Dosage: 1 TABLET  DAILY
     Dates: start: 20071103, end: 20071107
  3. ANTIBIOTIC [Concomitant]

REACTIONS (4)
  - ABASIA [None]
  - ARTHRALGIA [None]
  - CRYING [None]
  - THYROID DISORDER [None]
